FAERS Safety Report 8383470-6 (Version None)
Quarter: 2012Q2

REPORT INFORMATION
  Report Type: 
  Country: None (occurrence: None)
  Receive Date: 20120524
  Receipt Date: 20120522
  Transmission Date: 20120825
  Serious: Yes (Death)
  Sender: FDA-Public Use
  Company Number: PHHY2012IT043638

PATIENT
  Sex: Male

DRUGS (1)
  1. METHOTREXATE [Suspect]

REACTIONS (1)
  - GASTRIC CANCER [None]
